FAERS Safety Report 7938232-8 (Version None)
Quarter: 2011Q4

REPORT INFORMATION
  Report Type: 
  Country: None (occurrence: None)
  Receive Date: 20111123
  Receipt Date: 20111113
  Transmission Date: 20120403
  Serious: Yes (Hospitalization, Other)
  Sender: FDA-Public Use
  Company Number: CHPA2011LB015959

PATIENT
  Age: 51 Year
  Sex: Male

DRUGS (2)
  1. RANITIDINE [Concomitant]
     Dosage: UNK, UNK
     Route: 065
  2. THERAFLU EXTRA STRENGTH COLD + FLU [Suspect]
     Indication: NASOPHARYNGITIS
     Dosage: 1 DF, ONCE/SINGLE
     Route: 048
     Dates: start: 20111111, end: 20111111

REACTIONS (13)
  - HYPERSENSITIVITY [None]
  - NASAL CONGESTION [None]
  - DIARRHOEA [None]
  - DYSPNOEA [None]
  - COUGH [None]
  - GASTRIC ULCER [None]
  - RASH GENERALISED [None]
  - ABDOMINAL PAIN UPPER [None]
  - LIP SWELLING [None]
  - GASTROINTESTINAL HYPERMOTILITY [None]
  - HEADACHE [None]
  - PAIN [None]
  - IMMUNE SYSTEM DISORDER [None]
